FAERS Safety Report 7854062-X (Version None)
Quarter: 2011Q4

REPORT INFORMATION
  Report Type: 
  Country: None (occurrence: None)
  Receive Date: 20111026
  Receipt Date: 20111020
  Transmission Date: 20120403
  Serious: No
  Sender: FDA-Public Use
  Company Number: US-PFIZER INC-2011254414

PATIENT
  Sex: Female

DRUGS (2)
  1. PRIMIDONE [Concomitant]
     Indication: CONVULSION
     Dosage: 25 MG, 2X/DAY
  2. PHENYTOIN [Suspect]
     Indication: CONVULSION
     Dosage: 100 MG, 3X/DAY
     Dates: start: 19770101

REACTIONS (2)
  - BURNING SENSATION [None]
  - PARAESTHESIA [None]
